FAERS Safety Report 8483733 (Version 3)
Quarter: 2013Q2

REPORT INFORMATION
  Report Type: Spontaneous
  Country: IT (occurrence: IT)
  Receive Date: 20120329
  Receipt Date: 20130506
  Transmission Date: 20140414
  Serious: Yes (Other)
  Sender: FDA-Public Use
  Company Number: IT-GILEAD-2012-0052626

PATIENT
  Age: 31 Year
  Sex: Female

DRUGS (3)
  1. VIREAD [Suspect]
     Indication: HEPATITIS B
     Dosage: 300 MG, UNK
     Route: 048
     Dates: start: 20110628
  2. ETRAVIRINE [Concomitant]
     Indication: HEPATITIS B
     Dosage: UNK
     Dates: start: 20110608
  3. EUTIROX [Concomitant]
     Indication: HYPOTHYROIDISM
     Dosage: UNK
     Dates: start: 20091210

REACTIONS (1)
  - Stillbirth [Unknown]
